FAERS Safety Report 19382688 (Version 1)
Quarter: 2021Q2

REPORT INFORMATION
  Report Type: Spontaneous
  Country: US (occurrence: US)
  Receive Date: 20210607
  Receipt Date: 20210607
  Transmission Date: 20210717
  Serious: No
  Sender: FDA-Public Use
  Company Number: US-HARMONY BIOSCIENCES-2021HMY00785

PATIENT
  Sex: Male

DRUGS (1)
  1. WAKIX [Suspect]
     Active Substance: PITOLISANT HYDROCHLORIDE
     Dosage: UNK
     Dates: start: 2021

REACTIONS (8)
  - Blepharospasm [Not Recovered/Not Resolved]
  - Aphasia [Unknown]
  - Grunting [Unknown]
  - Vision blurred [Unknown]
  - Stress [Unknown]
  - Eye movement disorder [Unknown]
  - Paraesthesia [Unknown]
  - Muscle twitching [Not Recovered/Not Resolved]

NARRATIVE: CASE EVENT DATE: 2021
